FAERS Safety Report 7917165-7 (Version None)
Quarter: 2011Q4

REPORT INFORMATION
  Report Type: 
  Country: None (occurrence: None)
  Receive Date: 20111102
  Receipt Date: 20111025
  Transmission Date: 20120403
  Serious: Yes (Death)
  Sender: FDA-Public Use
  Company Number: 2011030027

PATIENT
  Age: 68 Year
  Sex: Male

DRUGS (17)
  1. SIMVASTATIN [Concomitant]
  2. DIGOXIN [Concomitant]
  3. PANTOPRAZOLE SODIUM [Concomitant]
  4. MACROGOL (MACROGOL) [Concomitant]
  5. MARCUMAR [Concomitant]
  6. PREDNISOLON /00016201/ (PREDNISOLONE) [Concomitant]
  7. DIOVAN [Concomitant]
  8. LYRICA [Concomitant]
  9. PRIVIGEN [Suspect]
     Indication: IMMUNODEFICIENCY
     Dosage: 10 G QD INTRAVENOUS (NOT OTHERWISE SPECIFIED)
     Route: 042
     Dates: start: 20111007, end: 20111007
  10. HYDROCHLOROTHIAZIDE [Concomitant]
  11. TORSEMIDE [Concomitant]
  12. PENTAERYTHIRITOL TETRANITRATE TAB [Concomitant]
  13. RITUXIMAB (RITUXIMAB) [Concomitant]
  14. FELODIPIN (FELODIPINE) [Concomitant]
  15. BERLINSULIN H BASAL (NISULIN INJECTION, ISOPHANE) [Concomitant]
  16. METOPROLOL TARTRATE [Concomitant]
  17. TORASEMID-1A PHARMA (TORASEMIDE) [Concomitant]

REACTIONS (2)
  - SUDDEN DEATH [None]
  - CARDIAC FAILURE [None]
